FAERS Safety Report 9542294 (Version 1)
Quarter: 2013Q3

REPORT INFORMATION
  Report Type: Spontaneous
  Country: BY (occurrence: None)
  Receive Date: 20130918
  Receipt Date: 20130918
  Transmission Date: 20140515
  Serious: Yes (Other)
  Sender: FDA-Public Use
  Company Number: CO-OR-BY-2013-068

PATIENT
  Age: 17 Year
  Sex: Male

DRUGS (5)
  1. PREDNISOLONE (PREDNISOLONE) [Suspect]
  2. HEPARIN [Suspect]
  3. CYCLOSPORIN A [Concomitant]
  4. MEDROL [Concomitant]
  5. TACROLIMUS [Concomitant]

REACTIONS (2)
  - Drug ineffective [None]
  - Proteinuria [None]
